FAERS Safety Report 10033901 (Version 1)
Quarter: 2014Q1

REPORT INFORMATION
  Report Type: Spontaneous
  Country: US (occurrence: US)
  Receive Date: 20140325
  Receipt Date: 20140325
  Transmission Date: 20141002
  Serious: No
  Sender: FDA-Public Use
  Company Number: US-009507513-1403USA002289

PATIENT
  Sex: Male

DRUGS (3)
  1. TEMODAR [Suspect]
     Indication: MALIGNANT MELANOMA
     Dosage: 3 DF, QD
     Route: 048
     Dates: start: 20140303
  2. FLOMAX (MORNIFLUMATE) [Concomitant]
  3. DIAZEPAM [Concomitant]

REACTIONS (1)
  - Vomiting [Not Recovered/Not Resolved]
